FAERS Safety Report 8360604-0 (Version None)
Quarter: 2012Q2

REPORT INFORMATION
  Report Type: 
  Country: None (occurrence: None)
  Receive Date: 20120515
  Receipt Date: 20120509
  Transmission Date: 20120825
  Serious: Yes (Life-Threatening)
  Sender: FDA-Public Use
  Company Number: FR-ASTRAZENECA-2012SE30119

PATIENT
  Age: 77 Year
  Sex: Male

DRUGS (4)
  1. SUXAMETHONIUM BIOCODEX [Suspect]
     Indication: ANAESTHESIA
     Dosage: 50 MG/ML
     Route: 042
     Dates: start: 20120425, end: 20120425
  2. SUFENTANIL CITRATE [Suspect]
     Route: 042
     Dates: start: 20120425, end: 20120425
  3. DIPRIVAN [Suspect]
     Route: 042
     Dates: start: 20120425, end: 20120425
  4. ETOMIDATE [Suspect]
     Indication: ANAESTHESIA
     Route: 042
     Dates: start: 20120425, end: 20120425

REACTIONS (4)
  - TACHYCARDIA [None]
  - HYPOCAPNIA [None]
  - BRONCHOSPASM [None]
  - BLOOD PRESSURE DECREASED [None]
